FAERS Safety Report 14677823 (Version 2)
Quarter: 2018Q2

REPORT INFORMATION
  Report Type: Spontaneous
  Country: FR (occurrence: FR)
  Receive Date: 20180326
  Receipt Date: 20180627
  Transmission Date: 20180711
  Serious: Yes (Other)
  Sender: FDA-Public Use
  Company Number: FR-MERCK KGAA-2044473

PATIENT
  Sex: Male

DRUGS (1)
  1. NOVOTHYROX [Suspect]
     Active Substance: LEVOTHYROXINE SODIUM
     Indication: HYPOTHYROIDISM

REACTIONS (5)
  - Hypothyroidism [Not Recovered/Not Resolved]
  - Nervousness [None]
  - Blood thyroid stimulating hormone abnormal [None]
  - Palpitations [Recovering/Resolving]
  - Hyperhidrosis [Recovering/Resolving]
